FAERS Safety Report 5287238-9 (Version None)
Quarter: 2007Q2

REPORT INFORMATION
  Report Type: 
  Country: None (occurrence: None)
  Receive Date: 20070404
  Receipt Date: 20070323
  Transmission Date: 20071010
  Serious: Yes (Other)
  Sender: FDA-Public Use
  Company Number: US-PFIZER INC-2007024244

PATIENT
  Age: 58 Year
  Sex: Male
  Weight: 77.1 kg

DRUGS (4)
  1. XALATAN [Suspect]
     Indication: GLAUCOMA
     Route: 061
  2. TIMOLOL MALEATE [Interacting]
     Indication: GLAUCOMA
  3. CIALIS [Interacting]
     Indication: ERECTILE DYSFUNCTION
     Dates: start: 20070201, end: 20070201
  4. LOVASTATIN [Concomitant]

REACTIONS (6)
  - BLOOD CHOLESTEROL INCREASED [None]
  - DRUG INTERACTION [None]
  - GROIN PAIN [None]
  - HEADACHE [None]
  - MYALGIA [None]
  - VISUAL ACUITY REDUCED [None]
